FAERS Safety Report 24383209 (Version 1)
Quarter: 2024Q4

REPORT INFORMATION
  Report Type: Spontaneous
  Country: US (occurrence: US)
  Receive Date: 20241001
  Receipt Date: 20241001
  Transmission Date: 20250115
  Serious: No
  Sender: CATALYST PHARMA
  Company Number: US-CATALYST PHARMACEUTICALS-US-CATA-24-00543

PATIENT
  Sex: Male
  Weight: 43.093 kg

DRUGS (12)
  1. AGAMREE [Suspect]
     Active Substance: VAMOROLONE
     Indication: Duchenne muscular dystrophy
     Dosage: 6.5 ML DAILY
     Route: 048
     Dates: start: 20240517, end: 202405
  2. AGAMREE [Suspect]
     Active Substance: VAMOROLONE
     Dosage: 6.2 ML ONCE A DAY
     Route: 048
     Dates: start: 202405, end: 202405
  3. EMFLAZA [Suspect]
     Active Substance: DEFLAZACORT
     Indication: Duchenne muscular dystrophy
     Dosage: UNKNOWN
     Route: 065
     Dates: start: 2024
  4. ALENDRONATE [Concomitant]
     Active Substance: ALENDRONATE SODIUM
     Indication: Product used for unknown indication
     Dosage: 35 MG WEEKLY
     Route: 065
  5. LISINOPRIL [Concomitant]
     Active Substance: LISINOPRIL
     Indication: Product used for unknown indication
     Dosage: 5 MG DAILY
     Route: 065
  6. CARVEDILOL [Concomitant]
     Active Substance: CARVEDILOL
     Indication: Product used for unknown indication
     Dosage: 3.125 MG TWICE A DAY
     Route: 065
  7. OMNITROPE [Concomitant]
     Active Substance: SOMATROPIN
     Indication: Product used for unknown indication
     Dosage: 5MG/1.5ML DAILY
     Route: 058
  8. VITAMIN E [Concomitant]
     Active Substance: .ALPHA.-TOCOPHEROL
     Indication: Product used for unknown indication
     Dosage: 45 MG DAILY
     Route: 065
  9. CALCIUM PLUS MAGNESIUM PLUS VITAMIN D3 PLUS ZINC [Concomitant]
     Indication: Product used for unknown indication
     Dosage: 10 ML DAILY
     Route: 065
  10. CHILDREN^S MULTIVITAMIN [Concomitant]
     Indication: Product used for unknown indication
     Dosage: 2 GUMMIES DAILY
     Route: 065
  11. VITAMIN D3 [Concomitant]
     Active Substance: CHOLECALCIFEROL
     Indication: Product used for unknown indication
     Dosage: 2 GUMMIES DAILY
     Route: 065
  12. MELATONIN [Concomitant]
     Active Substance: MELATONIN
     Indication: Product used for unknown indication
     Dosage: 5 MG EVERY EVENING
     Route: 065

REACTIONS (8)
  - Arthralgia [Unknown]
  - Pain in extremity [Unknown]
  - Spinal pain [Unknown]
  - Muscular weakness [Not Recovered/Not Resolved]
  - Gait disturbance [Not Recovered/Not Resolved]
  - Fatigue [Not Recovered/Not Resolved]
  - Pain [Not Recovered/Not Resolved]
  - Insomnia [Unknown]

NARRATIVE: CASE EVENT DATE: 20240101
